FAERS Safety Report 7731094-3 (Version None)
Quarter: 2011Q3

REPORT INFORMATION
  Report Type: 
  Country: None (occurrence: None)
  Receive Date: 20110906
  Receipt Date: 20110906
  Transmission Date: 20111222
  Serious: Yes (Hospitalization)
  Sender: FDA-Public Use
  Company Number: None

PATIENT
  Age: 41 Year
  Sex: Female
  Weight: 65.317 kg

DRUGS (1)
  1. BUPROPION HCL [Suspect]
     Indication: DEPRESSION
     Dosage: 150MG
     Route: 048
     Dates: start: 20110608, end: 20110703

REACTIONS (4)
  - NAUSEA [None]
  - URINARY INCONTINENCE [None]
  - DYSPEPSIA [None]
  - VOMITING [None]
